FAERS Safety Report 7928361-7 (Version None)
Quarter: 2011Q4

REPORT INFORMATION
  Report Type: 
  Country: None (occurrence: None)
  Receive Date: 20111118
  Receipt Date: 20111110
  Transmission Date: 20120403
  Serious: Yes (Other)
  Sender: FDA-Public Use
  Company Number: PHHY2011CN100250

PATIENT
  Age: 47 Year
  Sex: Male

DRUGS (7)
  1. RITUXIMAB [Suspect]
     Indication: DIFFUSE LARGE B-CELL LYMPHOMA
     Dosage: UNK UKN, UNK
  2. VINCRISTINE [Suspect]
     Indication: DIFFUSE LARGE B-CELL LYMPHOMA
     Dosage: UNK UKN, UNK
  3. PREDNISOLONE [Suspect]
     Indication: DIFFUSE LARGE B-CELL LYMPHOMA
     Dosage: UNK UKN, UNK
  4. TENOFOVIR DISOPROXIL FUMARATE [Suspect]
     Dosage: UNK UKN, UNK
  5. DOXORUBICIN HCL [Suspect]
     Indication: DIFFUSE LARGE B-CELL LYMPHOMA
     Dosage: UNK UKN, UNK
  6. LAMIVUDINE [Suspect]
     Dosage: UNK UKN, UNK
  7. EFAVIRENZ [Suspect]
     Dosage: UNK UKN, UNK

REACTIONS (4)
  - FEBRILE NEUTROPENIA [None]
  - PYREXIA [None]
  - WHITE BLOOD CELL MORPHOLOGY ABNORMAL [None]
  - PANCYTOPENIA [None]
